FAERS Safety Report 6846986-7 (Version None)
Quarter: 2010Q3

REPORT INFORMATION
  Report Type: 
  Country: None (occurrence: None)
  Receive Date: 20100713
  Receipt Date: 20100708
  Transmission Date: 20110219
  Serious: Yes (Death)
  Sender: FDA-Public Use
  Company Number: 2010SP007232

PATIENT
  Age: 26 Year
  Sex: Female

DRUGS (11)
  1. MIRTAZAPINE [Suspect]
     Indication: DEPRESSION
     Dosage: 15 MG; QD; PO, 30 MG; QD; PO, 45 MG; QD; PO
     Route: 048
     Dates: start: 20091105, end: 20091125
  2. MIRTAZAPINE [Suspect]
     Indication: DEPRESSION
     Dosage: 15 MG; QD; PO, 30 MG; QD; PO, 45 MG; QD; PO
     Route: 048
     Dates: start: 20091126, end: 20091202
  3. MIRTAZAPINE [Suspect]
     Indication: DEPRESSION
     Dosage: 15 MG; QD; PO, 30 MG; QD; PO, 45 MG; QD; PO
     Route: 048
     Dates: start: 20091203, end: 20091226
  4. DEPROMEL (FLUVOXAMINE) [Suspect]
     Indication: DEPRESSION
     Dosage: 25 MG; QD; PO, 50 MG; QD; PO
     Route: 048
     Dates: start: 20090718, end: 20090724
  5. DEPROMEL (FLUVOXAMINE) [Suspect]
     Indication: DEPRESSION
     Dosage: 25 MG; QD; PO, 50 MG; QD; PO
     Route: 048
     Dates: start: 20090725, end: 20090801
  6. DEPROMEL (FLUVOXAMINE) [Suspect]
     Indication: DEPRESSION
     Dosage: 25 MG; QD; PO, 50 MG; QD; PO
     Route: 048
     Dates: start: 20090925, end: 20091226
  7. ATENOLOL [Concomitant]
  8. DEPAS [Concomitant]
  9. PZC [Concomitant]
  10. AMOXAN [Concomitant]
  11. ROHYPNOL [Concomitant]

REACTIONS (8)
  - ACCIDENT [None]
  - ASTHENIA [None]
  - COMPLETED SUICIDE [None]
  - DRUG WITHDRAWAL SYNDROME [None]
  - IMPULSIVE BEHAVIOUR [None]
  - IRRITABILITY [None]
  - PLEURAL HAEMORRHAGE [None]
  - TRAUMATIC LUNG INJURY [None]
